FAERS Safety Report 13179065 (Version 1)
Quarter: 2017Q1

REPORT INFORMATION
  Report Type: Spontaneous
  Country: US (occurrence: US)
  Receive Date: 20170201
  Receipt Date: 20170201
  Transmission Date: 20170428
  Serious: Yes (Hospitalization)
  Sender: FDA-Public Use
  Company Number: None

PATIENT
  Age: 27 Year
  Sex: Female
  Weight: 62.8 kg

DRUGS (10)
  1. PHYTONADIONE. [Suspect]
     Active Substance: PHYTONADIONE
     Indication: PREOPERATIVE CARE
     Dosage: ?          OTHER FREQUENCY:ONCE;?
     Route: 042
     Dates: start: 20170121, end: 20170121
  2. CHOLECALCIFEROL [Concomitant]
     Active Substance: CHOLECALCIFEROL
  3. PYRIDOXINE [Concomitant]
     Active Substance: PYRIDOXINE
  4. LACTOBACILLUS RHAMNOSUS GG [Concomitant]
  5. POLYETHYLENE GLYCOL [Concomitant]
     Active Substance: POLYETHYLENE GLYCOLS
  6. MIRALAX [Concomitant]
     Active Substance: POLYETHYLENE GLYCOL 3350
  7. VANCOMYCIN [Concomitant]
     Active Substance: VANCOMYCIN
  8. ROCEPHIN [Concomitant]
     Active Substance: CEFTRIAXONE SODIUM
  9. PHYTONADIONE. [Suspect]
     Active Substance: PHYTONADIONE
     Indication: ASPIRATION PLEURAL CAVITY
     Dosage: ?          OTHER FREQUENCY:ONCE;?
     Route: 042
     Dates: start: 20170121, end: 20170121
  10. PENICILLAMINE [Concomitant]
     Active Substance: PENICILLAMINE

REACTIONS (9)
  - Dyspnoea [None]
  - Hypoxia [None]
  - Pleural effusion [None]
  - Presyncope [None]
  - Bradycardia [None]
  - Hypotension [None]
  - Hyperhidrosis [None]
  - Cold sweat [None]
  - Infrequent bowel movements [None]

NARRATIVE: CASE EVENT DATE: 20170121
